FAERS Safety Report 17640411 (Version 1)
Quarter: 2020Q2

REPORT INFORMATION
  Report Type: Spontaneous
  Country: DE (occurrence: DE)
  Receive Date: 20200407
  Receipt Date: 20200407
  Transmission Date: 20200713
  Serious: Yes (Life-Threatening, Hospitalization)
  Sender: FDA-Public Use
  Company Number: DE-JNJFOC-20200345337

PATIENT
  Age: 0 Day
  Sex: Male
  Weight: 7.5 kg

DRUGS (1)
  1. RIVAROXABAN [Suspect]
     Active Substance: RIVAROXABAN
     Indication: MATERNAL EXPOSURE DURING PREGNANCY
     Route: 064

REACTIONS (6)
  - Bradycardia neonatal [Recovered/Resolved]
  - Cerebellar haemorrhage [Recovering/Resolving]
  - Resuscitation [Recovered/Resolved]
  - Periventricular haemorrhage neonatal [Recovering/Resolving]
  - Cerebral haemorrhage foetal [Recovering/Resolving]
  - Infantile apnoea [Recovered/Resolved]

NARRATIVE: CASE EVENT DATE: 20190615
